FAERS Safety Report 7610727-6 (Version None)
Quarter: 2011Q3

REPORT INFORMATION
  Report Type: 
  Country: None (occurrence: None)
  Receive Date: 20110707
  Receipt Date: 20110622
  Transmission Date: 20111222
  Serious: Yes (Death, Hospitalization, Other)
  Sender: FDA-Public Use
  Company Number: 2011MA007931

PATIENT
  Age: 28 Year
  Sex: Female

DRUGS (2)
  1. SERTRALINE HYDROCHLORIDE [Suspect]
     Indication: INTENTIONAL OVERDOSE
     Dosage: 420 MG; 1X;
  2. OLANZAPINE [Concomitant]

REACTIONS (6)
  - LUNG INFILTRATION [None]
  - SUICIDE ATTEMPT [None]
  - CONTINUOUS HAEMODIAFILTRATION [None]
  - MULTIPLE DRUG OVERDOSE [None]
  - NEUROLEPTIC MALIGNANT SYNDROME [None]
  - STAPHYLOCOCCUS TEST POSITIVE [None]
